FAERS Safety Report 15752432 (Version 1)
Quarter: 2018Q4

REPORT INFORMATION
  Report Type: Spontaneous
  Country: US (occurrence: US)
  Receive Date: 20181221
  Receipt Date: 20181221
  Transmission Date: 20190205
  Serious: No
  Sender: FDA-Public Use
  Company Number: US-FRESENIUS KABI-FK201812960

PATIENT

DRUGS (1)
  1. ROPIVACAINE FRESENIUS KABI (NOT SPECIFIED) [Suspect]
     Active Substance: ROPIVACAINE
     Indication: NERVE BLOCK
     Route: 065

REACTIONS (1)
  - Drug ineffective [Unknown]
